FAERS Safety Report 4314018-0 (Version None)
Quarter: 2004Q1

REPORT INFORMATION
  Report Type: 
  Country: None (occurrence: None)
  Receive Date: 20040309
  Receipt Date: 20040226
  Transmission Date: 20041129
  Serious: Yes (Other)
  Sender: FDA-Public Use
  Company Number: PHEH2004US02642

PATIENT
  Sex: Female
  Weight: 61 kg

DRUGS (2)
  1. ESIDRIX [Suspect]
     Dosage: UNK/UNK
  2. NORVASC [Suspect]

REACTIONS (1)
  - ANGIONEUROTIC OEDEMA [None]
